FAERS Safety Report 13079276 (Version 2)
Quarter: 2017Q1

REPORT INFORMATION
  Report Type: Report from Study
  Country: None (occurrence: US)
  Receive Date: 20170103
  Receipt Date: 20170215
  Transmission Date: 20170428
  Serious: Yes (Hospitalization, Other)
  Sender: FDA-Public Use
  Company Number: US-ABBVIE-16K-163-1823920-00

PATIENT
  Age: 66 Year
  Sex: Female
  Weight: 92.16 kg

DRUGS (4)
  1. HUMIRA [Suspect]
     Active Substance: ADALIMUMAB
     Route: 058
     Dates: start: 201612
  2. HUMIRA [Suspect]
     Active Substance: ADALIMUMAB
     Indication: RHEUMATOID ARTHRITIS
     Route: 058
     Dates: start: 2015, end: 201610
  3. ESTRACE [Concomitant]
     Active Substance: ESTRADIOL
     Indication: HORMONE REPLACEMENT THERAPY
  4. METHOTREXATE. [Concomitant]
     Active Substance: METHOTREXATE
     Indication: RHEUMATOID ARTHRITIS

REACTIONS (6)
  - Pyrexia [Recovered/Resolved]
  - Impaired healing [Recovering/Resolving]
  - Weight decreased [Not Recovered/Not Resolved]
  - Gastrointestinal infection [Recovered/Resolved]
  - Large intestine benign neoplasm [Recovered/Resolved]
  - Benign lymph node neoplasm [Recovering/Resolving]

NARRATIVE: CASE EVENT DATE: 201610
